FAERS Safety Report 5642926-7 (Version None)
Quarter: 2008Q1

REPORT INFORMATION
  Report Type: 
  Country: None (occurrence: None)
  Receive Date: 20080228
  Receipt Date: 20080222
  Transmission Date: 20080703
  Serious: Yes (Death)
  Sender: FDA-Public Use
  Company Number: 981222-008015134

PATIENT

DRUGS (4)
  1. HALDOL [Suspect]
     Indication: AGITATION
     Route: 041
  2. HALDOL [Suspect]
     Indication: ANXIETY DISORDER
     Dosage: 4 AMPOULES IN 1 HOUR
     Route: 041
  3. BROMAZEPAM [Suspect]
     Indication: DRUG USE FOR UNKNOWN INDICATION
  4. UNKNOWN [Concomitant]

REACTIONS (1)
  - PULMONARY OEDEMA [None]
